FAERS Safety Report 12152865 (Version 2)
Quarter: 2016Q1

REPORT INFORMATION
  Report Type: Spontaneous
  Country: US (occurrence: US)
  Receive Date: 20160305
  Receipt Date: 20160310
  Transmission Date: 20160526
  Serious: No
  Sender: FDA-Public Use
  Company Number: US-ASTRAZENECA-2016SE23787

PATIENT
  Sex: Male

DRUGS (2)
  1. ZANTAC [Suspect]
     Active Substance: RANITIDINE HYDROCHLORIDE
     Indication: ABDOMINAL DISCOMFORT
     Route: 065
  2. NEXIUM 24HR [Suspect]
     Active Substance: ESOMEPRAZOLE MAGNESIUM
     Route: 048

REACTIONS (1)
  - Heart rate increased [Recovered/Resolved]

NARRATIVE: CASE EVENT DATE: 20160215
